FAERS Safety Report 4719334-6 (Version None)
Quarter: 2005Q3

REPORT INFORMATION
  Report Type: 
  Country: None (occurrence: None)
  Receive Date: 20050721
  Receipt Date: 20050715
  Transmission Date: 20060218
  Serious: Yes (Hospitalization)
  Sender: FDA-Public Use
  Company Number: US-BOEHRINGER INGELHEIM PHARMACEUTICALS, INC.-2005-BP-12052BP

PATIENT
  Sex: Male
  Weight: 68 kg

DRUGS (16)
  1. TIPRANAVIR / RITONAVIR CAPSULES [Suspect]
     Indication: HIV INFECTION
     Dosage: TPV/R 1000/400 MG
     Route: 048
  2. COMBIVIR [Concomitant]
     Indication: HIV INFECTION
     Route: 048
  3. FUZEON [Concomitant]
  4. ASPIRIN [Concomitant]
     Indication: PROPHYLAXIS
     Route: 048
  5. NORVASC [Concomitant]
     Indication: HYPERTENSION
     Route: 048
  6. BACTRIM DS [Concomitant]
  7. LABETALOL HCL [Concomitant]
  8. NITROGLYCERIN [Concomitant]
     Indication: CHEST PAIN
  9. ALBUTEROL [Concomitant]
     Indication: ASTHMA
     Route: 055
  10. ATROVENT [Concomitant]
     Indication: ASTHMA
     Route: 055
  11. FLOVENT [Concomitant]
     Indication: ASTHMA
     Route: 055
  12. MYCELEX [Concomitant]
     Indication: CANDIDIASIS
     Dosage: X5
     Route: 048
  13. AZITHROMYCIN [Concomitant]
     Indication: PROPHYLAXIS
     Route: 048
  14. AMBIEN [Concomitant]
     Indication: INSOMNIA
     Route: 048
  15. COMPAZINE [Concomitant]
     Indication: NAUSEA
     Route: 048
  16. VIAGRA [Concomitant]
     Indication: ERECTILE DYSFUNCTION
     Route: 048

REACTIONS (2)
  - DIARRHOEA [None]
  - OEDEMA PERIPHERAL [None]
